FAERS Safety Report 20687061 (Version 4)
Quarter: 2022Q4

REPORT INFORMATION
  Report Type: Spontaneous
  Country: JP (occurrence: JP)
  Receive Date: 20220407
  Receipt Date: 20221207
  Transmission Date: 20230113
  Serious: Yes (Other)
  Sender: FDA-Public Use
  Company Number: JP-Eisai-202112308_LEN-EC_P_1

PATIENT
  Age: 63 Year
  Sex: Female

DRUGS (8)
  1. LENVIMA [Suspect]
     Active Substance: LENVATINIB
     Indication: Endometrial cancer
     Route: 048
     Dates: start: 20220127, end: 202202
  2. LENVIMA [Suspect]
     Active Substance: LENVATINIB
     Dosage: DOSE DECREASED BY ONE LEVEL (DOSE AND FREQUENCY UNKNOWN)
     Route: 048
     Dates: start: 202203, end: 2022
  3. LENVIMA [Suspect]
     Active Substance: LENVATINIB
     Route: 048
     Dates: start: 2022, end: 20220714
  4. LENVIMA [Suspect]
     Active Substance: LENVATINIB
     Route: 048
     Dates: start: 20220825, end: 20220914
  5. LENVIMA [Suspect]
     Active Substance: LENVATINIB
     Route: 048
     Dates: start: 20220915, end: 20220926
  6. LENVIMA [Suspect]
     Active Substance: LENVATINIB
     Dosage: WEEKEND-OFF SCHEDULE
     Route: 048
     Dates: start: 20221006, end: 20221012
  7. LENVIMA [Suspect]
     Active Substance: LENVATINIB
     Dosage: WEEKEND-OFF SCHEDULE
     Route: 048
     Dates: start: 20221013
  8. KEYTRUDA [Suspect]
     Active Substance: PEMBROLIZUMAB
     Indication: Endometrial cancer
     Route: 041
     Dates: start: 20220127

REACTIONS (5)
  - Cataract [Unknown]
  - Hypertension [Recovering/Resolving]
  - Palmar-plantar erythrodysaesthesia syndrome [Recovering/Resolving]
  - Hypothyroidism [Recovering/Resolving]
  - Hyperthyroidism [Recovering/Resolving]

NARRATIVE: CASE EVENT DATE: 20220201
